FAERS Safety Report 19140535 (Version 1)
Quarter: 2021Q2

REPORT INFORMATION
  Report Type: Spontaneous
  Country: CN (occurrence: CN)
  Receive Date: 20210415
  Receipt Date: 20210415
  Transmission Date: 20210717
  Serious: Yes (Life-Threatening, Hospitalization)
  Sender: FDA-Public Use
  Company Number: CN-PFIZER INC-2021406251

PATIENT
  Age: 17 Year
  Sex: Male
  Weight: 82 kg

DRUGS (4)
  1. LORAZEPAM. [Suspect]
     Active Substance: LORAZEPAM
     Indication: DEPRESSION
     Dosage: 14 DF, 1X/DAY
     Route: 048
     Dates: start: 20210310, end: 20210310
  2. MULTIENZYME [AMYLASE\LIPASE\PEPSIN\TRYPSIN] [Suspect]
     Active Substance: AMYLASE\LIPASE\PEPSIN\TRYPSIN
     Indication: DEPRESSION
     Dosage: 100 DF, 1X/DAY
     Route: 048
     Dates: start: 20210310, end: 20210310
  3. SERTRALINE HCL [Suspect]
     Active Substance: SERTRALINE HYDROCHLORIDE
     Indication: DEPRESSION
     Dosage: 28 DF, 1X/DAY
     Route: 048
     Dates: start: 20210310, end: 20210310
  4. VITAMIN B6 [Suspect]
     Active Substance: PYRIDOXINE HYDROCHLORIDE
     Indication: DEPRESSION
     Dosage: 100 DF, 1X/DAY
     Route: 048
     Dates: start: 20210310, end: 20210310

REACTIONS (10)
  - Discomfort [Unknown]
  - Intentional overdose [Unknown]
  - Gait disturbance [Recovered/Resolved]
  - Toxicity to various agents [Unknown]
  - Vomiting [Recovered/Resolved]
  - Dizziness [Recovered/Resolved]
  - Diarrhoea [Recovered/Resolved]
  - Nausea [Recovered/Resolved]
  - Ocular discomfort [Recovered/Resolved]
  - Off label use [Unknown]

NARRATIVE: CASE EVENT DATE: 20210310
